FAERS Safety Report 10160100 (Version 1)
Quarter: 2014Q2

REPORT INFORMATION
  Report Type: Spontaneous
  Country: US (occurrence: None)
  Receive Date: 20140507
  Receipt Date: 20140507
  Transmission Date: 20141212
  Serious: Yes (Life-Threatening)
  Sender: FDA-Public Use
  Company Number: None

PATIENT
  Age: 46 Year
  Sex: Female
  Weight: 57.61 kg

DRUGS (6)
  1. MULTI-VITAMIN [Suspect]
  2. CHEWABLE MELONTONIN 3 MG [Concomitant]
  3. AMBIEN (ZOLPIDEM TARTRATE) [Suspect]
     Indication: SLEEP DISORDER
     Dosage: 10 MG ONE-HALF @ BEDTIME BY MOUTH
     Route: 048
     Dates: end: 20140419
  4. IRON PILLS 28MG [Suspect]
  5. CALCIUM [Suspect]
  6. ESTRADIOL [Suspect]

REACTIONS (3)
  - Loss of consciousness [None]
  - Somnambulism [None]
  - Legal problem [None]
